FAERS Safety Report 5675628-1 (Version None)
Quarter: 2008Q1

REPORT INFORMATION
  Report Type: 
  Country: None (occurrence: None)
  Receive Date: 20080321
  Receipt Date: 20080311
  Transmission Date: 20080703
  Serious: Yes (Death)
  Sender: FDA-Public Use
  Company Number: US-ROCHE-550354

PATIENT
  Age: 47 Year
  Sex: Male

DRUGS (7)
  1. PEGASYS [Suspect]
     Indication: HEPATITIS C
     Dosage: PRE FILLED SYRINGE
     Route: 065
     Dates: start: 20071120, end: 20080220
  2. COPEGUS [Suspect]
     Indication: HEPATITIS C
     Route: 065
     Dates: start: 20071120, end: 20080220
  3. KLONOPIN [Concomitant]
  4. UNSPECIFIED DRUG [Concomitant]
  5. UNSPECIFIED DRUG [Concomitant]
  6. MORPHINE SULFATE [Concomitant]
  7. LEXAPRO [Concomitant]

REACTIONS (5)
  - DEATH [None]
  - DEPRESSION [None]
  - DRUG INEFFECTIVE [None]
  - GOUT [None]
  - NO THERAPEUTIC RESPONSE [None]
